FAERS Safety Report 12347139 (Version 1)
Quarter: 2016Q2

REPORT INFORMATION
  Report Type: Spontaneous
  Country: US (occurrence: US)
  Receive Date: 20160509
  Receipt Date: 20160509
  Transmission Date: 20160815
  Serious: No
  Sender: FDA-Public Use
  Company Number: US-ELI_LILLY_AND_COMPANY-US201605001537

PATIENT
  Age: 66 Year
  Sex: Female

DRUGS (1)
  1. HUMATROPE [Suspect]
     Active Substance: SOMATROPIN
     Indication: GROWTH HORMONE DEFICIENCY
     Dosage: 1.8 MG, UNKNOWN
     Route: 065
     Dates: start: 20160503

REACTIONS (4)
  - Irritability [Unknown]
  - Incorrect dose administered [Unknown]
  - Injection site erythema [Unknown]
  - Confusional state [Unknown]

NARRATIVE: CASE EVENT DATE: 20160503
